FAERS Safety Report 9694986 (Version 2)
Quarter: 2018Q2

REPORT INFORMATION
  Report Type: Spontaneous
  Country: JP (occurrence: JP)
  Receive Date: 20131119
  Receipt Date: 20180517
  Transmission Date: 20180711
  Serious: Yes (Other)
  Sender: FDA-Public Use
  Company Number: JP-BAYER-2013-136683

PATIENT
  Sex: Female

DRUGS (1)
  1. YAZ [Suspect]
     Active Substance: DROSPIRENONE\ETHINYL ESTRADIOL
     Dosage: UNK
     Route: 048
     Dates: start: 201210

REACTIONS (4)
  - Internal haemorrhage [None]
  - Vascular pain [None]
  - Joint swelling [None]
  - Oedema peripheral [None]

NARRATIVE: CASE EVENT DATE: 2013
